FAERS Safety Report 23578984 (Version 3)
Quarter: 2025Q2

REPORT INFORMATION
  Report Type: Spontaneous
  Country: GB (occurrence: GB)
  Receive Date: 20240229
  Receipt Date: 20250524
  Transmission Date: 20250717
  Serious: Yes (Hospitalization, Other)
  Sender: AUROBINDO
  Company Number: GB-MLMSERVICE-20240209-4823318-1

PATIENT
  Age: 64 Year
  Sex: Female

DRUGS (3)
  1. CLARITHROMYCIN [Suspect]
     Active Substance: CLARITHROMYCIN
     Indication: Helicobacter infection
     Route: 065
  2. AMOXICILLIN [Concomitant]
     Active Substance: AMOXICILLIN
     Indication: Helicobacter infection
     Route: 048
  3. OMEPRAZOLE [Concomitant]
     Active Substance: OMEPRAZOLE
     Indication: Helicobacter infection
     Route: 065

REACTIONS (6)
  - Partial seizures [Recovering/Resolving]
  - Mania [Recovered/Resolved]
  - Neurotoxicity [Recovered/Resolved]
  - Agitation [Recovering/Resolving]
  - Behaviour disorder [Recovering/Resolving]
  - Emotional disorder [Recovering/Resolving]
